FAERS Safety Report 5956063-5 (Version None)
Quarter: 2008Q4

REPORT INFORMATION
  Report Type: 
  Country: None (occurrence: None)
  Receive Date: 20081118
  Receipt Date: 20081110
  Transmission Date: 20090506
  Serious: Yes (Hospitalization)
  Sender: FDA-Public Use
  Company Number: DE-WYE-G02540708

PATIENT
  Age: 52 Year
  Sex: Female

DRUGS (9)
  1. VENLAFAXINE HCL [Suspect]
     Indication: DEPRESSION
     Route: 048
     Dates: start: 20080626, end: 20080629
  2. VENLAFAXINE HCL [Suspect]
     Route: 048
     Dates: start: 20080630, end: 20080710
  3. VENLAFAXINE HCL [Suspect]
     Route: 048
     Dates: start: 20080711
  4. LAMICTAL [Concomitant]
     Route: 048
     Dates: start: 20080618, end: 20080702
  5. LAMICTAL [Concomitant]
     Route: 048
     Dates: start: 20080703, end: 20080709
  6. LAMICTAL [Concomitant]
     Route: 048
     Dates: start: 20080710
  7. LORAZEPAM [Concomitant]
     Route: 048
     Dates: start: 20080501, end: 20080620
  8. LORAZEPAM [Concomitant]
     Route: 048
     Dates: start: 20080621, end: 20080623
  9. LORAZEPAM [Concomitant]
     Route: 048
     Dates: start: 20080624

REACTIONS (3)
  - ACTIVITIES OF DAILY LIVING IMPAIRED [None]
  - HEADACHE [None]
  - NECK PAIN [None]
